FAERS Safety Report 10622702 (Version 1)
Quarter: 2014Q4

REPORT INFORMATION
  Report Type: Spontaneous
  Country: US (occurrence: US)
  Receive Date: 20141203
  Receipt Date: 20141203
  Transmission Date: 20150529
  Serious: No
  Sender: FDA-Public Use
  Company Number: US-009507513-1410USA006206

PATIENT
  Sex: Female

DRUGS (1)
  1. COPPERTONE WATER BABIES LOTION SPF 45 [Suspect]
     Active Substance: OCTINOXATE\OCTOCRYLENE
     Dosage: UNK, UNKNOWN
     Route: 061

REACTIONS (1)
  - Expired product administered [Unknown]
